FAERS Safety Report 4924252-4 (Version None)
Quarter: 2006Q1

REPORT INFORMATION
  Report Type: 
  Country: None (occurrence: None)
  Receive Date: 20060221
  Receipt Date: 20060207
  Transmission Date: 20060701
  Serious: Yes (Other)
  Sender: FDA-Public Use
  Company Number: 2006019239

PATIENT
  Age: 74 Year
  Sex: Female
  Weight: 83.9154 kg

DRUGS (4)
  1. LIPITOR [Suspect]
     Indication: BLOOD CHOLESTEROL INCREASED
     Dosage: 10 MG (10 MG, 1 IN 1 D), ORAL
     Route: 048
  2. LISINOPRIL [Concomitant]
  3. FOLIC ACID [Concomitant]
  4. ACETYLSALICYLIC ACID SRT [Concomitant]

REACTIONS (4)
  - DYSGEUSIA [None]
  - HYPOSMIA [None]
  - INFECTION [None]
  - RHINITIS [None]
